FAERS Safety Report 9486365 (Version 3)
Quarter: 2014Q4

REPORT INFORMATION
  Report Type: Report from Study
  Country: CN (occurrence: CN)
  Receive Date: 20130829
  Receipt Date: 20141006
  Transmission Date: 20150529
  Serious: Yes (Other)
  Sender: FDA-Public Use
  Company Number: CN-ASTELLAS-2013US009054

PATIENT
  Sex: Male

DRUGS (1)
  1. ERLOTINIB [Suspect]
     Active Substance: ERLOTINIB
     Indication: NON-SMALL CELL LUNG CANCER
     Route: 048
     Dates: start: 20121005

REACTIONS (4)
  - Nasopharyngitis [Unknown]
  - Pneumothorax [Unknown]
  - Pyrexia [Unknown]
  - Malignant neoplasm progression [Unknown]
